FAERS Safety Report 25301111 (Version 2)
Quarter: 2025Q2

REPORT INFORMATION
  Report Type: Spontaneous
  Country: US (occurrence: US)
  Receive Date: 20250512
  Receipt Date: 20250513
  Transmission Date: 20250717
  Serious: No
  Sender: PFIZER
  Company Number: US-PFIZER INC-202500096592

PATIENT
  Age: 64 Year
  Sex: Female
  Weight: 70.76 kg

DRUGS (3)
  1. PREMARIN [Suspect]
     Active Substance: ESTROGENS, CONJUGATED
     Indication: Hot flush
     Dosage: 1.25MG TABLETS, RECEIVES ONCE A MONTH 30 DAY SUPPLY, 1 PILL AT NIGHT BEFORE BED
     Dates: end: 2023
  2. PREMARIN [Suspect]
     Active Substance: ESTROGENS, CONJUGATED
     Indication: Menopausal symptoms
     Dosage: 1.25MG TABLETS, RECEIVES ONCE A MONTH 30 DAY SUPPLY, 1 PILL AT NIGHT BEFORE BED
     Dates: start: 2025
  3. AMLODIPINE [Concomitant]
     Active Substance: AMLODIPINE BESYLATE
     Indication: Hypertension

REACTIONS (2)
  - Hot flush [Not Recovered/Not Resolved]
  - Condition aggravated [Not Recovered/Not Resolved]
